FAERS Safety Report 7149361-3 (Version None)
Quarter: 2010Q4

REPORT INFORMATION
  Report Type: 
  Country: None (occurrence: None)
  Receive Date: 20101209
  Receipt Date: 20100901
  Transmission Date: 20110411
  Serious: No
  Sender: FDA-Public Use
  Company Number: US-KINGPHARMUSA00001-K201001102

PATIENT
  Sex: Female

DRUGS (3)
  1. EMBEDA [Suspect]
     Indication: PAIN
     Dosage: 20 MG, QD
  2. EMBEDA [Suspect]
     Dosage: 20 MG, BID
  3. ANALGESICS [Concomitant]
     Indication: PAIN

REACTIONS (5)
  - BLOOD PRESSURE INCREASED [None]
  - DRUG INEFFECTIVE [None]
  - HEART RATE INCREASED [None]
  - MALAISE [None]
  - TACHYCARDIA [None]
